FAERS Safety Report 10758193 (Version 2)
Quarter: 2015Q1

REPORT INFORMATION
  Report Type: Spontaneous
  Country: US (occurrence: US)
  Receive Date: 20150203
  Receipt Date: 20150204
  Transmission Date: 20150721
  Serious: No
  Sender: FDA-Public Use
  Company Number: US-BAYER-2015-015613

PATIENT
  Age: 71 Year
  Sex: Male
  Weight: 68 kg

DRUGS (1)
  1. ALEVE [Suspect]
     Active Substance: NAPROXEN SODIUM
     Indication: TOOTHACHE
     Dosage: UNK, PRN
     Route: 048

REACTIONS (3)
  - Dysgeusia [None]
  - Throat irritation [Unknown]
  - Vomiting [None]

NARRATIVE: CASE EVENT DATE: 20150129
